FAERS Safety Report 6917734-7 (Version None)
Quarter: 2010Q3

REPORT INFORMATION
  Report Type: 
  Country: None (occurrence: None)
  Receive Date: 20100810
  Receipt Date: 20100104
  Transmission Date: 20110219
  Serious: No
  Sender: FDA-Public Use
  Company Number: US-TYCO HEALTHCARE/MALLINCKRODT-T201000019

PATIENT

DRUGS (9)
  1. PAMELOR [Suspect]
     Indication: NEUROPATHY PERIPHERAL
     Dosage: 50 MG, QD
     Route: 048
  2. ALL OTHER THERAPEUTIC PRODUCTS [Suspect]
     Dosage: UNK
  3. INSULIN [Concomitant]
     Indication: TYPE 1 DIABETES MELLITUS
     Dosage: UNKNOWN DOSE VIA PUMP
  4. PROVIGIL [Concomitant]
     Indication: PRODUCT USED FOR UNKNOWN INDICATION
     Dosage: UNK
  5. RISPERIDONE [Concomitant]
     Indication: PRODUCT USED FOR UNKNOWN INDICATION
     Dosage: UNK
  6. PROZAC                             /00724401/ [Concomitant]
     Indication: NEUROPATHY PERIPHERAL
     Dosage: UNK
  7. AMLODIPINE [Concomitant]
     Indication: BLOOD PRESSURE
     Dosage: UNK
  8. DILTIAZEM HCL [Concomitant]
     Indication: BLOOD PRESSURE
     Dosage: UNK
  9. TRIAMTERENE AND HYDROCHLOROTHIAZIDE [Concomitant]
     Indication: BLOOD PRESSURE
     Dosage: UNK

REACTIONS (3)
  - ANGIOEDEMA [None]
  - OROPHARYNGEAL PAIN [None]
  - SENSATION OF FOREIGN BODY [None]
